FAERS Safety Report 7541604-7 (Version None)
Quarter: 2011Q2

REPORT INFORMATION
  Report Type: 
  Country: None (occurrence: None)
  Receive Date: 20110613
  Receipt Date: 20110602
  Transmission Date: 20111010
  Serious: Yes (Hospitalization, Other)
  Sender: FDA-Public Use
  Company Number: CA-ELI_LILLY_AND_COMPANY-CA201106000538

PATIENT
  Sex: Female
  Weight: 72.109 kg

DRUGS (8)
  1. ZYPREXA [Suspect]
     Indication: SCHIZOPHRENIA, PARANOID TYPE
     Dosage: 10 MG, EACH EVENING
  2. LORAZEPAM [Concomitant]
  3. CHLORAL HYDRATE [Concomitant]
  4. ORAP [Concomitant]
  5. SERAX [Concomitant]
  6. ZYPREXA [Suspect]
     Dosage: 20 MG, UNK
  7. CITALOPRAM [Concomitant]
  8. ZYPREXA [Suspect]
     Dosage: 15 MG, UNK

REACTIONS (4)
  - CORONARY ARTERY DISEASE [None]
  - CEREBROVASCULAR ACCIDENT [None]
  - MYOCARDIAL INFARCTION [None]
  - DIABETES MELLITUS [None]
